FAERS Safety Report 16992666 (Version 1)
Quarter: 2019Q4

REPORT INFORMATION
  Report Type: Spontaneous
  Country: US (occurrence: US)
  Receive Date: 20191105
  Receipt Date: 20191105
  Transmission Date: 20200122
  Serious: No
  Sender: FDA-Public Use
  Company Number: US-LUPIN PHARMACEUTICALS INC.-2019-00143

PATIENT
  Age: 2 Year

DRUGS (1)
  1. CEFTRIAXONE INJECTION [Suspect]
     Active Substance: CEFTRIAXONE SODIUM
     Indication: EAR INFECTION
     Dosage: 500 MG, SINGLE
     Route: 065
     Dates: start: 20190104, end: 20190104

REACTIONS (2)
  - No adverse event [Unknown]
  - Recalled product administered [Unknown]

NARRATIVE: CASE EVENT DATE: 20190104
